FAERS Safety Report 22621077 (Version 1)
Quarter: 2023Q2

REPORT INFORMATION
  Report Type: Spontaneous
  Country: US (occurrence: None)
  Receive Date: 20230616
  Receipt Date: 20230616
  Transmission Date: 20230721
  Serious: Yes (Hospitalization)
  Sender: FDA-Public Use
  Company Number: None

PATIENT
  Sex: Male

DRUGS (5)
  1. BRAFTOVI [Suspect]
     Active Substance: ENCORAFENIB
     Indication: Colon cancer
     Dosage: 3CAP QD PO
     Route: 048
  2. ATORVASTATIN [Concomitant]
     Active Substance: ATORVASTATIN
  3. GABAPENTIN [Concomitant]
     Active Substance: GABAPENTIN
  4. HYDROCORTISONE [Concomitant]
     Active Substance: HYDROCORTISONE
  5. LOSARTAN [Concomitant]
     Active Substance: LOSARTAN

REACTIONS (2)
  - Cardiac pacemaker insertion [None]
  - Therapy interrupted [None]
